FAERS Safety Report 18320928 (Version 1)
Quarter: 2020Q3

REPORT INFORMATION
  Report Type: Spontaneous
  Country: ES (occurrence: ES)
  Receive Date: 20200929
  Receipt Date: 20200929
  Transmission Date: 20201103
  Serious: Yes (Hospitalization)
  Sender: FDA-Public Use
  Company Number: ES-AXELLIA-003374

PATIENT
  Age: 69 Year
  Sex: Female

DRUGS (1)
  1. COLISTIN [Suspect]
     Active Substance: COLISTIN
     Indication: INFECTIVE EXACERBATION OF BRONCHIECTASIS
     Dosage: STRENGTH: 1,000,000 IU
     Route: 042
     Dates: start: 20200724, end: 20200726

REACTIONS (2)
  - Renal tubular necrosis [Recovered/Resolved]
  - Pruritus [Recovered/Resolved]

NARRATIVE: CASE EVENT DATE: 20200725
